FAERS Safety Report 7037738-6 (Version None)
Quarter: 2010Q4

REPORT INFORMATION
  Report Type: 
  Country: None (occurrence: None)
  Receive Date: 20101011
  Receipt Date: 20100819
  Transmission Date: 20110411
  Serious: Yes (Hospitalization)
  Sender: FDA-Public Use
  Company Number: US-GILEAD-2010-0030791

PATIENT
  Sex: Female

DRUGS (18)
  1. LETAIRIS [Suspect]
     Indication: PULMONARY ARTERIAL HYPERTENSION
     Route: 048
     Dates: start: 20100204
  2. LASIX [Concomitant]
  3. ALBUTEROL [Concomitant]
  4. CELL CEPT [Concomitant]
  5. LEVOTHYROXINE SODIUM [Concomitant]
  6. REQUIP [Concomitant]
  7. OXYCONTIN [Concomitant]
  8. SOMA [Concomitant]
  9. HYDROCODONE BITARTRATE AND ACETAMINOPHEN [Concomitant]
  10. PROTONIX [Concomitant]
  11. ALLOPURINOL [Concomitant]
  12. KLOR-CON [Concomitant]
  13. CALCIUM 500 [Concomitant]
  14. VITAMIN D [Concomitant]
  15. VITAMIN B-12 [Concomitant]
  16. ZOLOFT [Concomitant]
  17. LYRICA [Concomitant]
  18. TRAZODONE HCL [Concomitant]

REACTIONS (2)
  - FALL [None]
  - PNEUMONIA [None]
